FAERS Safety Report 9466667 (Version 2)
Quarter: 2013Q3

REPORT INFORMATION
  Report Type: Spontaneous
  Country: US (occurrence: US)
  Receive Date: 20130820
  Receipt Date: 20130918
  Transmission Date: 20140515
  Serious: Yes (Hospitalization)
  Sender: FDA-Public Use
  Company Number: US-BRISTOL-MYERS SQUIBB COMPANY-19178490

PATIENT
  Age: 62 Year
  Sex: Male
  Weight: 176.87 kg

DRUGS (7)
  1. BYETTA [Suspect]
     Indication: TYPE 2 DIABETES MELLITUS
     Dosage: 5MCG FOR A COUPLE OF MONTHS,THEN 10MCG
     Route: 058
  2. LANTUS [Concomitant]
  3. INSULIN [Concomitant]
     Dosage: 1DF-60 UNITS
     Route: 058
  4. ZOLOFT [Concomitant]
     Route: 048
  5. LISINOPRIL [Concomitant]
     Route: 048
  6. COREG [Concomitant]
     Route: 048
  7. METFORMIN [Concomitant]
     Route: 048

REACTIONS (2)
  - Cellulitis [Recovering/Resolving]
  - Panniculitis [Recovered/Resolved]
